FAERS Safety Report 6849444-9 (Version None)
Quarter: 2010Q3

REPORT INFORMATION
  Report Type: 
  Country: None (occurrence: None)
  Receive Date: 20100716
  Receipt Date: 20070928
  Transmission Date: 20110219
  Serious: No
  Sender: FDA-Public Use
  Company Number: US-PFIZER INC-2007082371

PATIENT
  Age: 64 Year
  Sex: Female
  Weight: 77.3 kg

DRUGS (2)
  1. CHANTIX [Suspect]
     Indication: SMOKING CESSATION THERAPY
     Dates: end: 20070101
  2. DRUG, UNSPECIFIED [Concomitant]

REACTIONS (2)
  - ABNORMAL DREAMS [None]
  - WEIGHT INCREASED [None]
